FAERS Safety Report 6315022-3 (Version None)
Quarter: 2009Q3

REPORT INFORMATION
  Report Type: 
  Country: None (occurrence: None)
  Receive Date: 20090818
  Receipt Date: 20090818
  Transmission Date: 20100115
  Serious: Yes (Other)
  Sender: FDA-Public Use
  Company Number: None

PATIENT
  Age: 66 Year
  Sex: Male
  Weight: 74.8435 kg

DRUGS (1)
  1. NIASPAN [Suspect]
     Indication: BLOOD CHOLESTEROL INCREASED
     Dosage: 1 DAILY PO
     Route: 048
     Dates: start: 20090807, end: 20090808

REACTIONS (3)
  - ABDOMINAL DISCOMFORT [None]
  - BURNING SENSATION [None]
  - FLUSHING [None]
